FAERS Safety Report 13148526 (Version 1)
Quarter: 2017Q1

REPORT INFORMATION
  Report Type: Spontaneous
  Country: HR (occurrence: HR)
  Receive Date: 20170125
  Receipt Date: 20170125
  Transmission Date: 20170428
  Serious: Yes (Hospitalization, Other)
  Sender: FDA-Public Use
  Company Number: HR-TEVA-730693ACC

PATIENT
  Age: 44 Year
  Sex: Male

DRUGS (2)
  1. IBUPROFEN. [Suspect]
     Active Substance: IBUPROFEN
     Route: 048
     Dates: start: 20160504
  2. NOZINAN [Suspect]
     Active Substance: LEVOMEPROMAZINE
     Route: 048
     Dates: start: 20160504

REACTIONS (5)
  - Suicide attempt [Unknown]
  - Coma [Unknown]
  - Seizure [Unknown]
  - Hypotension [Unknown]
  - Acidosis [Unknown]

NARRATIVE: CASE EVENT DATE: 20160504
